FAERS Safety Report 4891543-5 (Version None)
Quarter: 2006Q1

REPORT INFORMATION
  Report Type: 
  Country: None (occurrence: None)
  Receive Date: 20060125
  Receipt Date: 20050112
  Transmission Date: 20060701
  Serious: Yes (Hospitalization)
  Sender: FDA-Public Use
  Company Number: US-MERCK-0501USA01849

PATIENT
  Age: 59 Year
  Sex: Female

DRUGS (6)
  1. VIOXX [Suspect]
     Indication: EPICONDYLITIS
     Route: 048
     Dates: start: 20000118, end: 20000201
  2. VIOXX [Suspect]
     Route: 048
     Dates: start: 20010801, end: 20021101
  3. VIOXX [Suspect]
     Route: 048
     Dates: start: 20040301, end: 20040901
  4. VIOXX [Suspect]
     Indication: BURSITIS
     Route: 048
     Dates: start: 20000118, end: 20000201
  5. VIOXX [Suspect]
     Route: 048
     Dates: start: 20010801, end: 20021101
  6. VIOXX [Suspect]
     Route: 048
     Dates: start: 20040301, end: 20040901

REACTIONS (23)
  - ADVERSE DRUG REACTION [None]
  - ADVERSE EVENT [None]
  - ANGINA PECTORIS [None]
  - ANXIETY [None]
  - CHEST PAIN [None]
  - COAGULOPATHY [None]
  - CORONARY ARTERY DISEASE [None]
  - CORONARY ARTERY OCCLUSION [None]
  - CORONARY ARTERY RESTENOSIS [None]
  - COSTOCHONDRITIS [None]
  - DYSPEPSIA [None]
  - FEMORAL ARTERY ANEURYSM [None]
  - HAEMATOMA [None]
  - HYPERCHOLESTEROLAEMIA [None]
  - MUSCLE STRAIN [None]
  - MYOCARDIAL INFARCTION [None]
  - OSTEOARTHRITIS [None]
  - OTITIS MEDIA ACUTE [None]
  - PALPITATIONS [None]
  - POISONING [None]
  - SPINAL OSTEOARTHRITIS [None]
  - THROMBOCYTOPENIA [None]
  - VASCULAR PSEUDOANEURYSM [None]
